FAERS Safety Report 7171112-7 (Version None)
Quarter: 2010Q4

REPORT INFORMATION
  Report Type: 
  Country: None (occurrence: None)
  Receive Date: 20101217
  Receipt Date: 20101026
  Transmission Date: 20110411
  Serious: Yes (Hospitalization, Other)
  Sender: FDA-Public Use
  Company Number: PHHO2010US10692

PATIENT
  Sex: Female
  Weight: 80 kg

DRUGS (20)
  1. MYCOPHENOLIC ACID [Suspect]
     Indication: RENAL TRANSPLANT
     Dosage: 720 MG, BID
     Route: 048
  2. MYCOPHENOLIC ACID [Suspect]
     Dosage: 4 TABLET BID
  3. ASPIRIN [Concomitant]
     Dosage: 81 MG, DAILY
  4. PLAVIX [Concomitant]
     Dosage: 75 MG, DAILY
  5. COLACE [Concomitant]
     Dosage: 100 MG, BID
  6. NEXIUM [Concomitant]
     Dosage: 20 MG, DAILY
  7. FEXOFENADINE HCL [Concomitant]
     Indication: HYPERSENSITIVITY
     Dosage: 180 MG, PRN
  8. LASIX [Concomitant]
     Dosage: 40 MG, BID
  9. GABAPENTIN [Concomitant]
     Dosage: 20 MG, QHS
  10. LANTUS [Concomitant]
     Dosage: 40 U, BID
  11. HUMALOG [Concomitant]
     Dosage: 20 U, TID
     Route: 058
  12. ISOSORBIDE MONONITRATE [Concomitant]
     Dosage: 90 MG, EACH MORNING
  13. METOPROLOL [Concomitant]
     Dosage: 25 MG, BID
  14. SINGULAIR [Concomitant]
     Dosage: 10 MG, DAILY
  15. MULTI-VITAMINS [Concomitant]
  16. POTASSIUM CHLORIDE [Concomitant]
     Dosage: 20 MEQ, DAILY
  17. PREDNISONE [Concomitant]
     Dosage: 05 MG, DAILY
  18. ZOCOR [Concomitant]
     Dosage: 40 MG, QHS
  19. PROGRAF [Concomitant]
     Dosage: 02 TABS IN MORNING, AND 01 EVERY EVENING
  20. IMMUNOSUPPRESSANTS [Concomitant]
     Indication: RENAL TRANSPLANT

REACTIONS (17)
  - ABDOMINAL PAIN UPPER [None]
  - ANAEMIA [None]
  - ANGINA PECTORIS [None]
  - BLOOD GLUCOSE DECREASED [None]
  - CARDIOMEGALY [None]
  - CHEST PAIN [None]
  - CHOLELITHIASIS [None]
  - DEHYDRATION [None]
  - HELICOBACTER GASTRITIS [None]
  - HYPERTENSION [None]
  - MYOCARDIAL INFARCTION [None]
  - NAUSEA [None]
  - OBESITY [None]
  - OEDEMA [None]
  - RENAL ATROPHY [None]
  - RENAL FAILURE [None]
  - VOMITING [None]
